FAERS Safety Report 19932745 (Version 1)
Quarter: 2021Q4

REPORT INFORMATION
  Report Type: Spontaneous
  Country: US (occurrence: US)
  Receive Date: 20211008
  Receipt Date: 20211008
  Transmission Date: 20220303
  Serious: No
  Sender: FDA-Public Use
  Company Number: US-009507513-2110USA001252

PATIENT
  Age: 58 Year
  Sex: Male

DRUGS (2)
  1. ALBUTEROL SULFATE [Suspect]
     Active Substance: ALBUTEROL SULFATE
     Indication: Asthma
     Dosage: 2 PUFFS EVERY 4 HOURS AS NEEDED
     Dates: start: 20210924
  2. WIXELA INHUB [Concomitant]
     Active Substance: FLUTICASONE PROPIONATE\SALMETEROL XINAFOATE

REACTIONS (3)
  - Device malfunction [Unknown]
  - Poor quality device used [Unknown]
  - Product outer packaging issue [Unknown]

NARRATIVE: CASE EVENT DATE: 20210924
